FAERS Safety Report 8505411-0 (Version None)
Quarter: 2012Q3

REPORT INFORMATION
  Report Type: 
  Country: None (occurrence: None)
  Receive Date: 20120712
  Receipt Date: 20120706
  Transmission Date: 20120928
  Serious: Yes (Hospitalization, Other)
  Sender: FDA-Public Use
  Company Number: US-PFIZER INC-2012124338

PATIENT
  Sex: Female
  Weight: 52 kg

DRUGS (4)
  1. GENOTROPIN [Suspect]
     Dosage: 2 MG, NIGHTLY
     Route: 058
     Dates: start: 20060101, end: 20120501
  2. LEVOTHYROXINE [Concomitant]
     Dosage: 50 UG, UNK
     Dates: start: 20110708
  3. GENOTROPIN [Suspect]
     Indication: TURNER'S SYNDROME
     Dosage: 2 MG, NIGHTLY
     Route: 058
     Dates: start: 20060101, end: 20120518
  4. PREMARIN [Suspect]
     Dosage: 0.3 MG, DAILY
     Route: 048
     Dates: start: 20110628

REACTIONS (6)
  - BENIGN INTRACRANIAL HYPERTENSION [None]
  - PAPILLOEDEMA [None]
  - VISUAL FIELD DEFECT [None]
  - TEARFULNESS [None]
  - TREMOR [None]
  - HEADACHE [None]
